FAERS Safety Report 6976919-4 (Version None)
Quarter: 2010Q3

REPORT INFORMATION
  Report Type: 
  Country: None (occurrence: None)
  Receive Date: 20100910
  Receipt Date: 20100831
  Transmission Date: 20110219
  Serious: Yes (Hospitalization)
  Sender: FDA-Public Use
  Company Number: AU-JNJFOC-20100803422

PATIENT

DRUGS (9)
  1. REMICADE [Suspect]
     Indication: PRODUCT USED FOR UNKNOWN INDICATION
     Route: 042
  2. REMICADE [Suspect]
     Route: 042
  3. REMICADE [Suspect]
     Route: 042
  4. BISOPROLOL FUMARATE [Concomitant]
  5. IMDUR [Concomitant]
  6. PERINDOPRIL ERBUMINE [Concomitant]
  7. ASPIRIN [Concomitant]
  8. ACIMAX [Concomitant]
  9. FOSAMAX [Concomitant]

REACTIONS (2)
  - COLLAPSE OF LUNG [None]
  - FLUID RETENTION [None]
